FAERS Safety Report 5832746-2 (Version None)
Quarter: 2008Q3

REPORT INFORMATION
  Report Type: 
  Country: None (occurrence: None)
  Receive Date: 20080804
  Receipt Date: 20080730
  Transmission Date: 20090109
  Serious: Yes (Death, Other)
  Sender: FDA-Public Use
  Company Number: PHHY2008IE14237

PATIENT
  Sex: Female

DRUGS (10)
  1. CLOZARIL [Suspect]
     Indication: SCHIZOPHRENIA
     Dosage: 100 MG IN THE MORN AND 200 MG IN THE EVE
  2. AVANDIA [Concomitant]
     Indication: DIABETES MELLITUS
     Dosage: 4 MG
     Route: 048
  3. METFORMIN HYDROCHLORIDE [Concomitant]
     Indication: DIABETES MELLITUS
     Dosage: 1500 MG
     Route: 048
  4. CRESTOR [Concomitant]
     Indication: BLOOD CHOLESTEROL INCREASED
     Dosage: 10 MG
     Route: 048
  5. VALSARTAN [Concomitant]
     Indication: HYPERTENSION
     Dosage: 160 MG
     Route: 048
  6. ASPIRIN [Concomitant]
     Dosage: 75 MG
     Route: 048
  7. NEO-MERCAZOLE TAB [Concomitant]
     Dosage: 25 MG
  8. LANSOPRAZOLE [Concomitant]
     Dosage: 30 MG
  9. NEBILET [Concomitant]
     Dosage: 5 MG
  10. COMBIVENT [Concomitant]

REACTIONS (2)
  - DEATH [None]
  - MYOCARDIAL INFARCTION [None]
